FAERS Safety Report 18575412 (Version 2)
Quarter: 2025Q1

REPORT INFORMATION
  Report Type: Spontaneous
  Country: CA (occurrence: CA)
  Receive Date: 20201203
  Receipt Date: 20250210
  Transmission Date: 20250409
  Serious: Yes (Other)
  Sender: SANOFI AVENTIS
  Company Number: CA-SA-2020SA342083

PATIENT
  Sex: Female

DRUGS (8)
  1. LEFLUNOMIDE [Suspect]
     Active Substance: LEFLUNOMIDE
     Indication: Product used for unknown indication
     Dosage: 20 MG, 1 EVERY 1 DAYS FOR 4 YEARS
     Route: 058
     Dates: start: 20130201, end: 20160901
  2. LEFLUNOMIDE [Suspect]
     Active Substance: LEFLUNOMIDE
     Indication: Product used for unknown indication
  3. ACTEMRA [Suspect]
     Active Substance: TOCILIZUMAB
     Indication: Product used for unknown indication
     Route: 065
     Dates: start: 201409, end: 201809
  4. ENBREL [Suspect]
     Active Substance: ETANERCEPT
     Indication: Product used for unknown indication
     Dosage: 50 MG, 1 EVERY 1 WEEK
     Route: 065
     Dates: start: 200812, end: 200910
  5. HUMIRA [Suspect]
     Active Substance: ADALIMUMAB
     Indication: Rheumatoid arthritis
     Dosage: 40 MG, QW
     Route: 058
     Dates: start: 201104, end: 201202
  6. XELJANZ [Suspect]
     Active Substance: TOFACITINIB CITRATE
     Indication: Product used for unknown indication
     Route: 065
  7. ORENCIA [Concomitant]
     Active Substance: ABATACEPT
     Indication: Product used for unknown indication
     Route: 058
     Dates: start: 2019, end: 2019
  8. ORENCIA [Concomitant]
     Active Substance: ABATACEPT
     Route: 042

REACTIONS (6)
  - Herpes ophthalmic [Unknown]
  - Liver disorder [Unknown]
  - Synovitis [Unknown]
  - Rheumatoid factor positive [Unknown]
  - Unevaluable event [Unknown]
  - Drug ineffective [Unknown]
